FAERS Safety Report 23652692 (Version 2)
Quarter: 2024Q2

REPORT INFORMATION
  Report Type: Spontaneous
  Country: BR (occurrence: BR)
  Receive Date: 20240320
  Receipt Date: 20240411
  Transmission Date: 20240716
  Serious: Yes (Hospitalization, Other)
  Sender: FDA-Public Use
  Company Number: BR-Accord-413783

PATIENT
  Age: 50 Year
  Sex: Female
  Weight: 61 kg

DRUGS (11)
  1. PACLITAXEL [Suspect]
     Active Substance: PACLITAXEL
     Indication: Squamous cell carcinoma of the cervix
     Dosage: DILUTED IN 500 ML OF PHYSIOLOGICAL SOLUTION
     Route: 042
     Dates: start: 20231107
  2. CARBOPLATIN [Concomitant]
     Active Substance: CARBOPLATIN
     Indication: Squamous cell carcinoma of the cervix
     Dosage: DILUTED IN 250 ML OF GLUCOSE SOLUTION
     Route: 042
     Dates: start: 20231107
  3. DEXAMETHASONE [Concomitant]
     Active Substance: DEXAMETHASONE
     Indication: Chemotherapy side effect prophylaxis
     Route: 042
     Dates: start: 20231107
  4. HYDROCORTISONE [Concomitant]
     Active Substance: HYDROCORTISONE
     Indication: Chemotherapy side effect prophylaxis
     Route: 042
     Dates: start: 20231107
  5. DIPHENHYDRAMINE [Concomitant]
     Active Substance: DIPHENHYDRAMINE
     Indication: Chemotherapy side effect prophylaxis
     Route: 042
     Dates: start: 20231107
  6. ONDANSETRON [Concomitant]
     Active Substance: ONDANSETRON
     Indication: Chemotherapy side effect prophylaxis
     Route: 042
     Dates: start: 20231107
  7. BROMOPRIDE [Concomitant]
     Active Substance: BROMOPRIDE
     Route: 048
     Dates: start: 20231006
  8. GABAPENTIN [Concomitant]
     Active Substance: GABAPENTIN
     Dosage: 12/12 H
     Route: 048
  9. MORPHINE SULFATE [Concomitant]
     Active Substance: MORPHINE SULFATE
     Dosage: 4/4 H
     Route: 048
  10. DIPYRONE [Concomitant]
     Active Substance: DIPYRONE
     Dosage: 4/4 H
     Route: 048
  11. LACTULOSE [Concomitant]
     Active Substance: LACTULOSE
     Route: 048

REACTIONS (6)
  - Neutropenia [Unknown]
  - Pancytopenia [Unknown]
  - Acute kidney injury [Unknown]
  - Hyponatraemia [Unknown]
  - Depressed level of consciousness [Unknown]
  - Off label use [Unknown]

NARRATIVE: CASE EVENT DATE: 20231112
